FAERS Safety Report 24612435 (Version 2)
Quarter: 2024Q4

REPORT INFORMATION
  Report Type: Spontaneous
  Country: CA (occurrence: CA)
  Receive Date: 20241113
  Receipt Date: 20241206
  Transmission Date: 20250114
  Serious: Yes (Other)
  Sender: CELLTRION
  Company Number: CA-PFIZER INC-202400296078

PATIENT

DRUGS (7)
  1. INFLECTRA [Suspect]
     Active Substance: INFLIXIMAB-DYYB
     Indication: Crohn^s disease
     Dosage: 5 MG/KG, EVERY 4 WEEKS
     Route: 042
     Dates: start: 20241007
  2. INFLECTRA [Suspect]
     Active Substance: INFLIXIMAB-DYYB
     Dosage: 650 MG, AFTER 4 WEEKS AND 1 DAY (10 MG/KG, EVERY 4 WEEKS)
     Route: 042
     Dates: start: 20241105
  3. CORTISONE [Concomitant]
     Active Substance: CORTISONE
     Dosage: 1 DF
  4. CALCIUM [Concomitant]
     Active Substance: CALCIUM
     Dosage: 1 DF
  5. IRON [Concomitant]
     Active Substance: IRON
     Dosage: 1 DF
  6. CHOLECALCIFEROL [Concomitant]
     Active Substance: CHOLECALCIFEROL
     Dosage: 1 DF
  7. ZOLMITRIPTAN [Concomitant]
     Active Substance: ZOLMITRIPTAN
     Dosage: 2500 UG, 1X/DAY
     Route: 048
     Dates: start: 20220301

REACTIONS (1)
  - Hidradenitis [Not Recovered/Not Resolved]

NARRATIVE: CASE EVENT DATE: 20240101
